FAERS Safety Report 9292395 (Version 1)
Quarter: 2013Q1

REPORT INFORMATION
  Report Type: Spontaneous
  Country: US (occurrence: None)
  Receive Date: 20121214
  Receipt Date: 20121214
  Transmission Date: 20140127
  Serious: Yes (Other)
  Sender: FDA-Public Use
  Company Number: US-JNJFOC-2007327344

PATIENT
  Sex: Male

DRUGS (1)
  1. SUDAFED 24 HOUR TABLETS (PSEUDOPEHDRINE HYDROCHLORIDE) [Suspect]
     Indication: HEADACHE
     Dosage: 4 TABLETS IN 24 HOURS
     Dates: start: 200707, end: 200707

REACTIONS (1)
  - Overdose [None]
